FAERS Safety Report 4263790-7 (Version None)
Quarter: 2004Q1

REPORT INFORMATION
  Report Type: 
  Country: None (occurrence: None)
  Receive Date: 20040102
  Receipt Date: 20031223
  Transmission Date: 20041129
  Serious: Yes (Other)
  Sender: FDA-Public Use
  Company Number: 2003-111314-NL

PATIENT
  Age: 21 Year
  Sex: Female
  Weight: 83.5 kg

DRUGS (1)
  1. MIRCETTE [Suspect]
     Indication: ENDOMETRIOSIS
     Dosage: 1 DF DAILY ORAL
     Route: 048
     Dates: start: 20030601, end: 20030901

REACTIONS (1)
  - ALOPECIA [None]
